FAERS Safety Report 9374706 (Version 1)
Quarter: 2013Q2

REPORT INFORMATION
  Report Type: Spontaneous
  Country: US (occurrence: US)
  Receive Date: 20130628
  Receipt Date: 20130628
  Transmission Date: 20140414
  Serious: Yes (Other)
  Sender: FDA-Public Use
  Company Number: US-ASTRAZENECA-2013SE47683

PATIENT
  Age: 91 Year
  Sex: Female

DRUGS (9)
  1. OMEPRAZOLE [Suspect]
     Route: 048
  2. BRILINTA [Suspect]
     Route: 048
     Dates: start: 20130612, end: 20130613
  3. ASPIRIN [Suspect]
     Indication: TRANSIENT ISCHAEMIC ATTACK
     Route: 065
     Dates: start: 20130610
  4. ASPIRIN [Suspect]
     Indication: MYOCARDIAL INFARCTION
     Route: 065
     Dates: start: 20130610
  5. ASPIRIN [Suspect]
     Indication: ADJUVANT THERAPY
     Route: 065
     Dates: start: 20130610
  6. PLAVIX [Suspect]
     Indication: TRANSIENT ISCHAEMIC ATTACK
     Route: 065
     Dates: start: 20130610, end: 20130611
  7. PLAVIX [Suspect]
     Indication: MYOCARDIAL INFARCTION
     Route: 065
     Dates: start: 20130610, end: 20130611
  8. LABETOLOL [Concomitant]
     Indication: BLOOD PRESSURE ABNORMAL
  9. AMBIEN [Concomitant]

REACTIONS (8)
  - Transient ischaemic attack [Unknown]
  - Intestinal obstruction [Unknown]
  - Myocardial infarction [Unknown]
  - Haematochezia [Recovered/Resolved]
  - Hernia [Unknown]
  - Gastric dilatation [Unknown]
  - Blood pressure abnormal [Unknown]
  - Abdominal discomfort [Unknown]
